FAERS Safety Report 10968985 (Version 2)
Quarter: 2015Q2

REPORT INFORMATION
  Report Type: Spontaneous
  Country: US (occurrence: US)
  Receive Date: 20150331
  Receipt Date: 20150506
  Transmission Date: 20150821
  Serious: No
  Sender: FDA-Public Use
  Company Number: US-009507513-1503USA006366

PATIENT
  Sex: Female
  Weight: 87.53 kg

DRUGS (1)
  1. NEXPLANON [Suspect]
     Active Substance: ETONOGESTREL
     Indication: CONTRACEPTION
     Dosage: 68 MG/ ONE ROD PER 3 YEARS
     Route: 059
     Dates: start: 20131010, end: 20150226

REACTIONS (2)
  - No adverse event [Unknown]
  - Device breakage [Recovered/Resolved]
